FAERS Safety Report 6535477-9 (Version None)
Quarter: 2010Q1

REPORT INFORMATION
  Report Type: 
  Country: None (occurrence: None)
  Receive Date: 20100113
  Receipt Date: 20100104
  Transmission Date: 20100710
  Serious: Yes (Hospitalization)
  Sender: FDA-Public Use
  Company Number: US-SANOFI-AVENTIS-2010SA001127

PATIENT
  Sex: Female

DRUGS (5)
  1. DOCETAXEL [Suspect]
     Indication: BREAST CANCER
     Route: 065
     Dates: start: 20091201
  2. CARBOPLATIN [Suspect]
     Indication: BREAST CANCER
     Dosage: AUC OF 5
     Route: 042
     Dates: start: 20091201
  3. TRASTUZUMAB [Suspect]
     Indication: BREAST CANCER
     Route: 065
     Dates: start: 20091201
  4. DEXAMETHASONE [Concomitant]
     Route: 065
     Dates: start: 20091201
  5. ZOFRAN [Concomitant]
     Route: 065
     Dates: start: 20091201

REACTIONS (1)
  - HAEMATURIA [None]
